FAERS Safety Report 13106853 (Version 3)
Quarter: 2017Q3

REPORT INFORMATION
  Report Type: Report from Study
  Country: US (occurrence: US)
  Receive Date: 20170111
  Receipt Date: 20170714
  Transmission Date: 20171127
  Serious: Yes (Hospitalization, Other)
  Sender: FDA-Public Use
  Company Number: US-GILEAD-2017-0252208

PATIENT
  Age: 25 Week
  Sex: Female
  Weight: 1.56 kg

DRUGS (5)
  1. ELVITEGRAVIR/COBICISTAT/EMTRICITABINE/TENOFOVIR ALAFENAMIDE [Suspect]
     Active Substance: COBICISTAT\ELVITEGRAVIR\EMTRICITABINE\TENOFOVIR
     Indication: HIV INFECTION
     Dosage: UNK
     Route: 064
     Dates: start: 20160908
  2. GENTAMYCIN                         /00047101/ [Concomitant]
     Active Substance: GENTAMICIN
     Indication: BETA HAEMOLYTIC STREPTOCOCCAL INFECTION
     Dosage: UNK
     Route: 064
     Dates: start: 201612, end: 20161227
  3. ELVITEGRAVIR/EMTRICITABINE/TENOFOVIR DF/COBICISTAT [Suspect]
     Active Substance: COBICISTAT\ELVITEGRAVIR\EMTRICITABINE\TENOFOVIR
     Indication: HIV INFECTION
     Dosage: UNK
     Route: 064
     Dates: end: 20160907
  4. BETAMETHASONE. [Concomitant]
     Active Substance: BETAMETHASONE
     Indication: OLIGOHYDRAMNIOS
     Dosage: UNK
     Route: 064
     Dates: start: 20161215, end: 20161216
  5. AMPICILLIN [Concomitant]
     Active Substance: AMPICILLIN
     Indication: BETA HAEMOLYTIC STREPTOCOCCAL INFECTION
     Dosage: UNK
     Route: 064
     Dates: start: 201612, end: 20161227

REACTIONS (3)
  - Foetal exposure during pregnancy [Recovered/Resolved]
  - Sepsis [Not Recovered/Not Resolved]
  - Endotracheal intubation [Not Recovered/Not Resolved]

NARRATIVE: CASE EVENT DATE: 20160708
